FAERS Safety Report 8012816-3 (Version None)
Quarter: 2011Q4

REPORT INFORMATION
  Report Type: 
  Country: None (occurrence: None)
  Receive Date: 20111229
  Receipt Date: 20111216
  Transmission Date: 20120403
  Serious: Yes (Other)
  Sender: FDA-Public Use
  Company Number: BR-BRISTOL-MYERS SQUIBB COMPANY-16312241

PATIENT
  Age: 44 Year
  Sex: Male

DRUGS (12)
  1. ROCEPHIN [Suspect]
     Dates: start: 20111129, end: 20111209
  2. ZOFRAN [Suspect]
     Dates: start: 20111129, end: 20111209
  3. ZOVIRAX [Suspect]
     Dates: start: 20111129, end: 20111209
  4. PANTOPRAZOLE SODIUM [Suspect]
     Dates: start: 20111129, end: 20111209
  5. EFAVIRENZ [Suspect]
     Indication: HIV INFECTION
     Route: 048
     Dates: start: 20111129, end: 20111203
  6. LAMIVUDINE [Suspect]
     Dates: start: 20111129, end: 20111209
  7. NYSTATIN [Suspect]
     Dates: start: 20111129, end: 20111209
  8. CEPACAINE [Suspect]
     Dates: start: 20111129, end: 20111208
  9. DIPYRONE TAB [Suspect]
     Dates: start: 20111129, end: 20111209
  10. FLUCONAZOLE [Suspect]
     Dates: start: 20111202, end: 20111209
  11. TRAMADOL HYDROCHLORIDE [Suspect]
     Dates: start: 20111129, end: 20111209
  12. CLINDAMYCIN [Suspect]
     Dates: start: 20111129, end: 20111209

REACTIONS (2)
  - RASH [None]
  - PRURITUS [None]
